FAERS Safety Report 10313021 (Version 1)
Quarter: 2014Q3

REPORT INFORMATION
  Report Type: Spontaneous
  Country: US (occurrence: None)
  Receive Date: 20140717
  Receipt Date: 20140717
  Transmission Date: 20150326
  Serious: Yes (Disabling)
  Sender: FDA-Public Use
  Company Number: None

PATIENT
  Age: 54 Year
  Sex: Female
  Weight: 50.35 kg

DRUGS (1)
  1. BUPROPION XL [Suspect]
     Active Substance: BUPROPION
     Indication: DEPRESSION
     Dosage: 1 PILL / 1 300 MG  ONCE DAILY TAKEN BY MOUTH
     Route: 048
     Dates: start: 20140201, end: 20140715

REACTIONS (8)
  - Pain [None]
  - Irritable bowel syndrome [None]
  - Condition aggravated [None]
  - Reaction to drug excipients [None]
  - Product substitution issue [None]
  - Constipation [None]
  - Product quality issue [None]
  - Nausea [None]

NARRATIVE: CASE EVENT DATE: 20140201
